FAERS Safety Report 4445852-4 (Version None)
Quarter: 2004Q3

REPORT INFORMATION
  Report Type: 
  Country: None (occurrence: None)
  Receive Date: 20040910
  Receipt Date: 20040826
  Transmission Date: 20050211
  Serious: Yes (Hospitalization)
  Sender: FDA-Public Use
  Company Number: PHEH2004US09320

PATIENT
  Age: 72 Year
  Sex: Male
  Weight: 84 kg

DRUGS (3)
  1. ZOMETA [Suspect]
     Indication: METASTASES TO BONE
     Dosage: 4 MG ONE TIME ONLY DOSE
     Route: 042
     Dates: start: 20040810, end: 20040810
  2. LUPRON [Suspect]
     Indication: PROSTATE CANCER METASTATIC
     Dosage: 22.5 EVERY 3-4 MONTHS
     Route: 030
     Dates: start: 20020101, end: 20040810
  3. CASODEX [Concomitant]
     Indication: PROSTATE CANCER
     Dosage: 50 MG, QD
     Route: 048
     Dates: start: 20020101

REACTIONS (11)
  - ANOREXIA [None]
  - ASTHENIA [None]
  - CONJUNCTIVITIS [None]
  - DIPLOPIA [None]
  - FEELING ABNORMAL [None]
  - HEADACHE [None]
  - INFLUENZA LIKE ILLNESS [None]
  - PAIN [None]
  - PAIN IN EXTREMITY [None]
  - PALLOR [None]
  - PYREXIA [None]
